FAERS Safety Report 5809843-0 (Version None)
Quarter: 2008Q3

REPORT INFORMATION
  Report Type: 
  Country: None (occurrence: None)
  Receive Date: 20080714
  Receipt Date: 20080714
  Transmission Date: 20090109
  Serious: No
  Sender: FDA-Public Use
  Company Number: None

PATIENT
  Age: 74 Year
  Sex: Female
  Weight: 69.4003 kg

DRUGS (1)
  1. VESICARE [Suspect]
     Dosage: 1 TABLET PER DAY PO
     Route: 048

REACTIONS (2)
  - NAUSEA [None]
  - VOMITING [None]
